FAERS Safety Report 4520852-4 (Version None)
Quarter: 2004Q4

REPORT INFORMATION
  Report Type: 
  Country: None (occurrence: None)
  Receive Date: 20041208
  Receipt Date: 20041129
  Transmission Date: 20050328
  Serious: Yes (Hospitalization)
  Sender: FDA-Public Use
  Company Number: US-JNJFOC-20041200110

PATIENT
  Sex: Female
  Weight: 90.72 kg

DRUGS (6)
  1. REMICADE [Suspect]
     Route: 042
  2. REMICADE [Suspect]
     Route: 042
  3. REMICADE [Suspect]
     Route: 042
  4. REMICADE [Suspect]
     Indication: RHEUMATOID ARTHRITIS
     Route: 042
  5. CELEBREX [Concomitant]
  6. XANAX [Concomitant]

REACTIONS (3)
  - ASTHENIA [None]
  - DRUG INEFFECTIVE [None]
  - PYREXIA [None]
